FAERS Safety Report 9496574 (Version 1)
Quarter: 2013Q3

REPORT INFORMATION
  Report Type: Spontaneous
  Country: GB (occurrence: GB)
  Receive Date: 20130904
  Receipt Date: 20130904
  Transmission Date: 20140515
  Serious: Yes (Hospitalization, Disabling, Other)
  Sender: FDA-Public Use
  Company Number: GB-ASTRAZENECA-2013SE65767

PATIENT
  Age: 60 Year
  Sex: Female

DRUGS (15)
  1. ANASTRAZOLE [Suspect]
     Indication: BREAST CANCER METASTATIC
     Route: 048
     Dates: start: 20130520
  2. BUMETANIDE [Concomitant]
  3. CITALOPRAM [Concomitant]
  4. CO-DANTHRAMER [Concomitant]
  5. CYCLIZINE [Concomitant]
  6. FERROUS FUMARATE [Concomitant]
  7. GLICLAZIDE [Concomitant]
  8. LEVEMIR [Concomitant]
  9. LISINOPRIL [Concomitant]
  10. METFORMIN [Concomitant]
  11. MEZOLAR MATRIX [Concomitant]
  12. OMEPRAZOLE [Concomitant]
  13. SEVREDOL [Concomitant]
  14. TRAMADOL [Concomitant]
  15. ZOPICLONE [Concomitant]

REACTIONS (2)
  - Mania [Recovered/Resolved with Sequelae]
  - Psychotic disorder [Recovered/Resolved with Sequelae]
